FAERS Safety Report 5402667-8 (Version None)
Quarter: 2007Q3

REPORT INFORMATION
  Report Type: 
  Country: None (occurrence: None)
  Receive Date: 20070801
  Receipt Date: 20070727
  Transmission Date: 20080115
  Serious: Yes (Hospitalization, Congenital Anomaly, Other)
  Sender: FDA-Public Use
  Company Number: A0659235B

PATIENT
  Sex: Female
  Weight: 2.3 kg

DRUGS (2)
  1. VALTREX [Suspect]
     Indication: GENITAL HERPES
     Dosage: 1G TWICE PER DAY
     Dates: start: 20070514, end: 20070523
  2. NO CONCURRENT MEDICATION [Concomitant]

REACTIONS (4)
  - APLASIA CUTIS CONGENITA [None]
  - DRUG EXPOSURE DURING PREGNANCY [None]
  - PREMATURE BABY [None]
  - TRANSIENT TACHYPNOEA OF THE NEWBORN [None]
